FAERS Safety Report 21177569 (Version 2)
Quarter: 2022Q3

REPORT INFORMATION
  Report Type: Spontaneous
  Country: US (occurrence: US)
  Receive Date: 20220805
  Receipt Date: 20220808
  Transmission Date: 20221027
  Serious: Yes (Other)
  Sender: FDA-Public Use
  Company Number: US-PFIZER INC-202201033410

PATIENT
  Age: 67 Year
  Sex: Male
  Weight: 89.81 kg

DRUGS (12)
  1. PAXLOVID [Suspect]
     Active Substance: NIRMATRELVIR\RITONAVIR
     Indication: COVID-19 treatment
     Dosage: [PF-07321332 300 MG]/[RITONAVIR 100 MG]; 2X/DAY
     Dates: start: 20220730
  2. AMLODIPINE [Concomitant]
     Active Substance: AMLODIPINE BESYLATE
     Indication: Blood pressure abnormal
     Dosage: 10 MG
  3. ANDRODERM [Concomitant]
     Active Substance: TESTOSTERONE
     Indication: Hormone replacement therapy
     Dosage: 4 MG
  4. CLINDAMYCIN [Concomitant]
     Active Substance: CLINDAMYCIN
     Dosage: 150 MG, 2X/DAY
  5. CLINDAMYCIN PHOSPHATE [Concomitant]
     Active Substance: CLINDAMYCIN PHOSPHATE
     Dosage: UNK (TOPICAL LOTION)
     Route: 061
  6. PEPCID [Concomitant]
     Active Substance: FAMOTIDINE
     Indication: Gastric disorder
     Dosage: 20 MG, 2X/DAY (20MG IN THE MORNING AND IN THE EVENING)
  7. HYDROXYCHLOROQUINE SULFATE [Concomitant]
     Active Substance: HYDROXYCHLOROQUINE SULFATE
     Indication: Rheumatoid arthritis
     Dosage: 200 MG, 2X/DAY (200MG IN MORNING AND THE EVENING)
  8. LEFLUNOMIDE [Concomitant]
     Active Substance: LEFLUNOMIDE
     Indication: Rheumatoid arthritis
     Dosage: 20 MG (20MG DAILY IN THE EVENING)
  9. PREDNISONE [Concomitant]
     Active Substance: PREDNISONE
     Indication: Rheumatoid arthritis
     Dosage: 5 MG, DAILY (5MG DAILY IN THE MORNING)
  10. ROSUVASTATIN CALCIUM [Concomitant]
     Active Substance: ROSUVASTATIN CALCIUM
     Indication: Blood cholesterol abnormal
     Dosage: 10 MG, DAILY (10MG IN THE EVENING)
  11. VITAMIN D NOS [Concomitant]
     Active Substance: VITAMIN D NOS
     Dosage: 2000 IU, DAILY (2000 UNITS IN THE MORNING)
  12. VITAFUSION MULTIVITES [Concomitant]
     Dosage: 5GRAMS IN THE MORNING AND EVENING, 2 GUMMIES EACH TIME

REACTIONS (4)
  - Haematochezia [Not Recovered/Not Resolved]
  - Anal haemorrhage [Not Recovered/Not Resolved]
  - Dysphonia [Not Recovered/Not Resolved]
  - Wound haemorrhage [Unknown]

NARRATIVE: CASE EVENT DATE: 20220731
